FAERS Safety Report 6127771-0 (Version None)
Quarter: 2009Q1

REPORT INFORMATION
  Report Type: 
  Country: None (occurrence: None)
  Receive Date: 20090320
  Receipt Date: 20090320
  Transmission Date: 20090719
  Serious: Yes (Other)
  Sender: FDA-Public Use
  Company Number: None

PATIENT
  Age: 28 Year
  Sex: Male
  Weight: 81 kg

DRUGS (1)
  1. SILVER SULFADIAZINE [Suspect]
     Indication: THERMAL BURN
     Dosage: TOPICALLY
     Route: 061

REACTIONS (3)
  - APPLICATION SITE REACTION [None]
  - HAEMORRHAGE [None]
  - PRODUCT QUALITY ISSUE [None]
